FAERS Safety Report 12224698 (Version 1)
Quarter: 2016Q1

REPORT INFORMATION
  Report Type: Spontaneous
  Country: JP (occurrence: JP)
  Receive Date: 20160331
  Receipt Date: 20160331
  Transmission Date: 20160526
  Serious: Yes (Other)
  Sender: FDA-Public Use
  Company Number: JP-ROCHE-1731394

PATIENT
  Age: 6 Year
  Sex: Male
  Weight: 25 kg

DRUGS (6)
  1. SINGULAIR [Concomitant]
     Active Substance: MONTELUKAST SODIUM
     Indication: INFLUENZA
     Route: 048
     Dates: start: 20160119
  2. AMBROXOL HYDROCHLORIDE [Concomitant]
     Active Substance: AMBROXOL HYDROCHLORIDE
     Indication: INFLUENZA
     Route: 048
     Dates: start: 20160119
  3. ASVERIN (TIPEPIDINE HIBENZATE) [Concomitant]
     Active Substance: TIPEPIDINE HIBENZATE
     Indication: INFLUENZA
     Dosage: POWDER
     Route: 048
     Dates: start: 20160119
  4. TAMIFLU [Suspect]
     Active Substance: OSELTAMIVIR PHOSPHATE
     Indication: INFLUENZA
     Route: 048
     Dates: start: 20160119, end: 20160120
  5. HOKUNALIN [Concomitant]
     Active Substance: TULOBUTEROL
     Indication: INFLUENZA
     Route: 048
     Dates: start: 20160119
  6. CALONAL [Concomitant]
     Active Substance: ACETAMINOPHEN
     Indication: INFLUENZA
     Route: 048
     Dates: start: 20160119

REACTIONS (5)
  - Abnormal behaviour [Recovered/Resolved]
  - Insomnia [Unknown]
  - Cough [Unknown]
  - Vomiting [Unknown]
  - Infection [Unknown]

NARRATIVE: CASE EVENT DATE: 20160120
